FAERS Safety Report 8357002-2 (Version None)
Quarter: 2012Q1

REPORT INFORMATION
  Report Type: 
  Country: None (occurrence: None)
  Receive Date: 20120315
  Receipt Date: 20110608
  Transmission Date: 20120608
  Serious: No
  Sender: FDA-Public Use
  Company Number: PHHY2011US21228

PATIENT
  Age: 58 Year
  Sex: Female

DRUGS (4)
  1. EXFORGE [Suspect]
  2. PROVIGIL [Concomitant]
  3. RELPAX [Concomitant]
  4. GILENYA [Suspect]
     Indication: MULTIPLE SCLEROSIS
     Dosage: 0.5 MG, QD, ORAL
     Route: 048
     Dates: start: 20110124, end: 20110311

REACTIONS (6)
  - RASH GENERALISED [None]
  - INFLUENZA LIKE ILLNESS [None]
  - DYSPNOEA [None]
  - FATIGUE [None]
  - BLOOD PRESSURE INCREASED [None]
  - PAIN [None]
